FAERS Safety Report 8806844 (Version 1)
Quarter: 2012Q4

REPORT INFORMATION
  Report Type: 
  Country: US (occurrence: US)
  Receive Date: 20120925
  Receipt Date: 20120925
  Transmission Date: 20130627
  Serious: Yes (Other)
  Sender: FDA-Public Use
  Company Number: US-ELI_LILLY_AND_COMPANY-US201209005842

PATIENT
  Age: 47 Year
  Sex: Female

DRUGS (2)
  1. EFFIENT [Suspect]
     Dosage: 30 mg, UNK
     Dates: start: 20120904, end: 20120904
  2. ANGIOMAX [Interacting]

REACTIONS (2)
  - Haematoma [Unknown]
  - Potentiating drug interaction [Unknown]
